FAERS Safety Report 4357697-4 (Version None)
Quarter: 2004Q2

REPORT INFORMATION
  Report Type: 
  Country: None (occurrence: None)
  Receive Date: 20040513
  Receipt Date: 20040419
  Transmission Date: 20050107
  Serious: Yes (Death)
  Sender: FDA-Public Use
  Company Number: JP-ROCHE-364643

PATIENT
  Age: 69 Year
  Sex: Male
  Weight: 55 kg

DRUGS (3)
  1. PEGASYS [Suspect]
     Indication: HEPATITIS C
     Dosage: STRENGTH REPORTED AS 90 MCG.
     Route: 058
     Dates: start: 20040330, end: 20040413
  2. PEGASYS [Suspect]
     Dosage: STRENGTH REPORTED AS 180 MCG.
     Route: 058
     Dates: start: 20040323, end: 20040323
  3. HARNAL [Concomitant]
     Route: 048

REACTIONS (6)
  - CARDIAC ARREST [None]
  - HAEMOPTYSIS [None]
  - PULMONARY ALVEOLAR HAEMORRHAGE [None]
  - PULMONARY HAEMORRHAGE [None]
  - PYREXIA [None]
  - RESPIRATORY FAILURE [None]
